FAERS Safety Report 7151577-7 (Version None)
Quarter: 2010Q4

REPORT INFORMATION
  Report Type: 
  Country: None (occurrence: None)
  Receive Date: 20101210
  Receipt Date: 20101206
  Transmission Date: 20110411
  Serious: Yes (Hospitalization)
  Sender: FDA-Public Use
  Company Number: DE-PFIZER INC-2010156518

PATIENT
  Age: 63 Year
  Sex: Male
  Weight: 114 kg

DRUGS (11)
  1. TEMSIROLIMUS [Suspect]
     Indication: RENAL CELL CARCINOMA
     Dosage: 25 MG, 1X/DAY
     Route: 042
     Dates: start: 20101108, end: 20101108
  2. TAVEGIL [Concomitant]
     Indication: PREMEDICATION
     Dosage: PREMEDICATED 2 MG, WEEKLY
     Dates: start: 20101108, end: 20101108
  3. DEXAMETHASONE [Concomitant]
     Indication: PREMEDICATION
     Dosage: PREMEDICATED 8 MG, WEEKLY
     Dates: start: 20101108, end: 20101108
  4. RAMIPRIL [Concomitant]
     Dosage: 2.5 MG, 1X/DAY
  5. TORASEMIDE [Concomitant]
     Dosage: 5 MG, 2X/DAY
  6. TAMSULOSIN [Concomitant]
     Dosage: UNK, 1X/DAY
  7. ASPIRIN [Concomitant]
     Dosage: 100 MG, 2X/DAY
  8. SIMVASTATIN [Concomitant]
     Dosage: 40 MG, 1X/DAY
  9. CARBIMAZOLE [Concomitant]
     Dosage: 5 MG, 1X/DAY
  10. PANTOPRAZOLE SODIUM [Concomitant]
     Dosage: 20 MG, 1X/DAY
  11. METAMIZOLE [Concomitant]
     Dosage: 20 GTT, 3X/DAY

REACTIONS (3)
  - LOSS OF CONSCIOUSNESS [None]
  - MUCOSAL INFLAMMATION [None]
  - PURULENCE [None]
